FAERS Safety Report 13625569 (Version 1)
Quarter: 2017Q2

REPORT INFORMATION
  Report Type: Spontaneous
  Country: US (occurrence: US)
  Receive Date: 20170607
  Receipt Date: 20170607
  Transmission Date: 20170830
  Serious: Yes (Other)
  Sender: FDA-Public Use
  Company Number: None

PATIENT
  Age: 63 Year
  Sex: Male

DRUGS (1)
  1. NEXAVAR [Suspect]
     Active Substance: SORAFENIB
     Indication: HEPATIC CANCER
     Route: 048
     Dates: start: 20170419

REACTIONS (7)
  - Confusional state [None]
  - Pruritus [None]
  - Rash [None]
  - Squamous cell carcinoma [None]
  - Flushing [None]
  - Neck pain [None]
  - Hemiparesis [None]

NARRATIVE: CASE EVENT DATE: 20170606
